FAERS Safety Report 23913823 (Version 1)
Quarter: 2024Q2

REPORT INFORMATION
  Report Type: Spontaneous
  Country: IL (occurrence: IL)
  Receive Date: 20240529
  Receipt Date: 20240529
  Transmission Date: 20240716
  Serious: Yes (Hospitalization)
  Sender: FDA-Public Use
  Company Number: IL-STRIDES ARCOLAB LIMITED-2024SP006149

PATIENT
  Age: 79 Year
  Sex: Male

DRUGS (7)
  1. PREDNISOLONE [Suspect]
     Active Substance: PREDNISOLONE
     Indication: Carpal tunnel syndrome
     Dosage: 1 MILLIGRAM/KILOGRAM, FOR A SPAN OF ONE WEEK
     Route: 065
  2. ATEZOLIZUMAB [Concomitant]
     Active Substance: ATEZOLIZUMAB
     Indication: Lung squamous cell carcinoma stage III
     Dosage: 1200 MILLIGRAM, ON DAY 1 EVERY 3 WEEK  ON DAY 1
     Route: 065
  3. ABRAXANE [Concomitant]
     Active Substance: PACLITAXEL
     Indication: Lung squamous cell carcinoma stage III
     Dosage: 80 MILLIGRAM/SQ. METER (ON DAYS 1, 8, AND 15)
     Route: 065
  4. CARBOPLATIN [Concomitant]
     Active Substance: CARBOPLATIN
     Indication: Lung squamous cell carcinoma stage III
     Dosage: UNK, ON DAY?1
     Route: 065
  5. Immunoglobulin [Concomitant]
     Indication: Carpal tunnel syndrome
     Dosage: 0.4 MILLIGRAM/KILOGRAM
     Route: 042
  6. Immunoglobulin [Concomitant]
     Dosage: UNK, MAINTENANCE THERAPY MONTHLY FOR 4?MONTHS
     Route: 042
  7. ASPIRIN [Concomitant]
     Active Substance: ASPIRIN
     Indication: Myocardial infarction
     Dosage: UNK
     Route: 065

REACTIONS (1)
  - Therapy non-responder [Unknown]
